FAERS Safety Report 4603430-8 (Version None)
Quarter: 2005Q2

REPORT INFORMATION
  Report Type: 
  Country: None (occurrence: None)
  Receive Date: 20050223
  Receipt Date: 20041104
  Transmission Date: 20051028
  Serious: No
  Sender: FDA-Public Use
  Company Number: 210201

PATIENT
  Age: 25 Year

DRUGS (1)
  1. RAPTIVA [Suspect]
     Indication: DRUG USE FOR UNKNOWN INDICATION
     Dosage: 0.6 MG. 1/WEEK, SUBCUTANEOUS
     Route: 058
     Dates: start: 20040706

REACTIONS (1)
  - ORAL CANDIDIASIS [None]
